FAERS Safety Report 4825618-3 (Version None)
Quarter: 2005Q4

REPORT INFORMATION
  Report Type: 
  Country: None (occurrence: None)
  Receive Date: 20051111
  Receipt Date: 20051024
  Transmission Date: 20060501
  Serious: No
  Sender: FDA-Public Use
  Company Number: US-GLAXOSMITHKLINE-A0579366A

PATIENT
  Age: 72 Year
  Sex: Male

DRUGS (4)
  1. AVODART [Suspect]
     Indication: BENIGN PROSTATIC HYPERPLASIA
     Dosage: .5MG PER DAY
     Route: 048
     Dates: start: 20051021, end: 20051022
  2. LANOXIN [Concomitant]
  3. ASPIRIN [Concomitant]
  4. FLOMAX [Concomitant]

REACTIONS (2)
  - PAIN [None]
  - URINARY RETENTION [None]
